FAERS Safety Report 4601499-8 (Version None)
Quarter: 2005Q1

REPORT INFORMATION
  Report Type: 
  Country: None (occurrence: None)
  Receive Date: 20050308
  Receipt Date: 20050225
  Transmission Date: 20050727
  Serious: Yes (Life-Threatening, Disabling, Other)
  Sender: FDA-Public Use
  Company Number: US-MERCK-0502USA03578

PATIENT
  Age: 67 Year
  Sex: Male

DRUGS (12)
  1. ZETIA [Suspect]
     Indication: BLOOD CHOLESTEROL INCREASED
     Route: 048
     Dates: start: 20040101
  2. ZOCOR [Suspect]
     Route: 048
     Dates: start: 20040101, end: 20040101
  3. ZOCOR [Suspect]
     Route: 048
     Dates: start: 20040101, end: 20040101
  4. COUMADIN [Concomitant]
     Route: 065
  5. LASIX [Concomitant]
     Route: 065
  6. AMIODARONE HYDROCHLORIDE [Concomitant]
     Route: 065
  7. ISOSORBIDE DINITRATE [Concomitant]
     Route: 065
  8. ATIVAN [Concomitant]
     Route: 065
  9. ASPIRIN [Concomitant]
     Route: 065
  10. COVERA-HS [Concomitant]
     Route: 065
  11. TOPROL-XL [Concomitant]
     Route: 065
  12. [THERAPY UNSPECIFIED] [Concomitant]
     Route: 065

REACTIONS (4)
  - ADVERSE EVENT [None]
  - CHEST PAIN [None]
  - HIGH DENSITY LIPOPROTEIN DECREASED [None]
  - WEIGHT INCREASED [None]
